FAERS Safety Report 8001137-0 (Version None)
Quarter: 2011Q4

REPORT INFORMATION
  Report Type: 
  Country: None (occurrence: None)
  Receive Date: 20111219
  Receipt Date: 20111205
  Transmission Date: 20120403
  Serious: Yes (Hospitalization)
  Sender: FDA-Public Use
  Company Number: 2011MA017418

PATIENT
  Sex: Male

DRUGS (12)
  1. PRINIVIL [Concomitant]
  2. SOTALOL HCL [Concomitant]
  3. MAGONATE [Concomitant]
  4. LORCET-HD [Concomitant]
  5. BETAPACE [Concomitant]
  6. MICRO-K [Concomitant]
  7. ZOLOFT [Concomitant]
  8. MEPERGAN [Concomitant]
  9. DIGOXIN [Suspect]
     Indication: ATRIAL FIBRILLATION
     Dosage: 0.25 MG;QD;PO
     Route: 048
     Dates: start: 20070430, end: 20070628
  10. LISINOPRIL [Concomitant]
  11. LIPITOR [Concomitant]
  12. COUMADIN [Concomitant]

REACTIONS (19)
  - HYPERLIPIDAEMIA [None]
  - VOMITING [None]
  - CHOLELITHIASIS [None]
  - BILIARY COLIC [None]
  - BLOOD ALBUMIN ABNORMAL [None]
  - HYPERTENSION [None]
  - BRADYCARDIA [None]
  - RENAL FAILURE CHRONIC [None]
  - CARDIAC VALVE DISEASE [None]
  - RENAL FAILURE [None]
  - NAUSEA [None]
  - CARDIAC FAILURE [None]
  - HYPONATRAEMIA [None]
  - VENTRICULAR EXTRASYSTOLES [None]
  - ABDOMINAL PAIN UPPER [None]
  - CARDIOMYOPATHY [None]
  - CHOLECYSTITIS [None]
  - HYPOKALAEMIA [None]
  - ELECTROLYTE IMBALANCE [None]
